FAERS Safety Report 11497577 (Version 1)
Quarter: 2015Q3

REPORT INFORMATION
  Report Type: Spontaneous
  Country: FI (occurrence: FI)
  Receive Date: 20150911
  Receipt Date: 20150911
  Transmission Date: 20151125
  Serious: Yes (Life-Threatening, Other)
  Sender: FDA-Public Use
  Company Number: FI-CONCORDIA PHARMACEUTICALS INC.-CO-ZF-FI-2015-007

PATIENT
  Age: 65 Year
  Sex: Male

DRUGS (2)
  1. ZINACEF [Suspect]
     Active Substance: CEFUROXIME SODIUM
     Indication: ARTHRITIS BACTERIAL
  2. ZINACEF [Suspect]
     Active Substance: CEFUROXIME SODIUM

REACTIONS (4)
  - Anaphylactic reaction [Unknown]
  - Conduction disorder [Unknown]
  - Feeling abnormal [Unknown]
  - Disorientation [Unknown]

NARRATIVE: CASE EVENT DATE: 20150611
